FAERS Safety Report 12217704 (Version 1)
Quarter: 2016Q1

REPORT INFORMATION
  Report Type: Report from Study
  Country: US (occurrence: US)
  Receive Date: 20160329
  Receipt Date: 20160329
  Transmission Date: 20160526
  Serious: Yes (Death, Hospitalization, Other)
  Sender: FDA-Public Use
  Company Number: US-JNJFOC-20160322222

PATIENT
  Age: 38 Year
  Sex: Male
  Weight: 64 kg

DRUGS (18)
  1. MAGNESIUM [Concomitant]
     Active Substance: MAGNESIUM
  2. MYCOPHENOLATE MOFETIL. [Concomitant]
     Active Substance: MYCOPHENOLATE MOFETIL
  3. IMBRUVICA [Suspect]
     Active Substance: IBRUTINIB
     Indication: B-CELL LYMPHOMA
     Route: 048
     Dates: start: 20150916, end: 20160119
  4. LORAZEPAM. [Concomitant]
     Active Substance: LORAZEPAM
  5. SALINE [Concomitant]
     Active Substance: SODIUM CHLORIDE
  6. PROCHLORPERAZINE. [Concomitant]
     Active Substance: PROCHLORPERAZINE
  7. URSODIOL. [Concomitant]
     Active Substance: URSODIOL
  8. MYCOPHENOLATE [Concomitant]
     Active Substance: MYCOPHENOLIC ACID
  9. BUDESONIDE. [Concomitant]
     Active Substance: BUDESONIDE
  10. ATOVAQUONE. [Concomitant]
     Active Substance: ATOVAQUONE
  11. PREDNISONE. [Concomitant]
     Active Substance: PREDNISONE
  12. LOVENOX [Concomitant]
     Active Substance: ENOXAPARIN SODIUM
  13. VALTREX [Concomitant]
     Active Substance: VALACYCLOVIR HYDROCHLORIDE
  14. CYCLOSPORIN [Concomitant]
     Active Substance: CYCLOSPORINE
  15. PENICILLINE [Concomitant]
     Active Substance: PENICILLIN
  16. VITAMINS NOS [Concomitant]
     Active Substance: VITAMINS
  17. OMEPRAZOLE. [Concomitant]
     Active Substance: OMEPRAZOLE
  18. HEPARIN SODIUM. [Concomitant]
     Active Substance: HEPARIN SODIUM

REACTIONS (7)
  - Respiratory distress [Recovering/Resolving]
  - Off label use [Unknown]
  - Pleural effusion [Unknown]
  - Death [Fatal]
  - Lung disorder [Unknown]
  - Gastrointestinal haemorrhage [Recovered/Resolved with Sequelae]
  - Pneumocystis jirovecii pneumonia [Unknown]

NARRATIVE: CASE EVENT DATE: 2016
